FAERS Safety Report 9245156 (Version 1)
Quarter: 2013Q2

REPORT INFORMATION
  Report Type: Spontaneous
  Country: ES (occurrence: ES)
  Receive Date: 20130422
  Receipt Date: 20130422
  Transmission Date: 20140414
  Serious: Yes (Life-Threatening, Hospitalization)
  Sender: FDA-Public Use
  Company Number: ES-PFIZER INC-2013124530

PATIENT
  Age: 82 Year
  Sex: Male

DRUGS (6)
  1. ALDACTONE [Suspect]
     Indication: CARDIAC FAILURE
     Dosage: 50 MG, 1X/DAY
     Route: 048
     Dates: end: 20100526
  2. DIGOXIN [Interacting]
     Indication: ATRIAL FIBRILLATION
     Dosage: 1.25 MG, WEEKLY
     Route: 048
  3. ENALAPRIL MALEATE [Interacting]
     Dosage: 5 MG, 1X/DAY
     Route: 048
     Dates: end: 20100526
  4. PREVENCOR [Concomitant]
     Indication: HYPERLIPIDAEMIA
     Dosage: 40 MG, 1X/DAY
     Route: 048
     Dates: start: 200705
  5. SUTRIL [Concomitant]
     Indication: CARDIAC FAILURE
     Dosage: 15 MG, 1X/DAY
     Route: 048
     Dates: start: 200707, end: 20100526
  6. ACENOCUMAROL [Concomitant]
     Indication: ATRIAL FIBRILLATION
     Dosage: DAILY

REACTIONS (4)
  - Cardiac arrest [Recovered/Resolved]
  - Hyperkalaemia [Recovered/Resolved]
  - Ventricular fibrillation [Recovered/Resolved]
  - Drug interaction [Recovered/Resolved]
